FAERS Safety Report 14481705 (Version 1)
Quarter: 2018Q1

REPORT INFORMATION
  Report Type: Report from Study
  Country: None (occurrence: BR)
  Receive Date: 20180202
  Receipt Date: 20180202
  Transmission Date: 20180509
  Serious: Yes (Other)
  Sender: FDA-Public Use
  Company Number: BR-ABBVIE-18K-020-2242659-00

PATIENT
  Age: 39 Year
  Sex: Male
  Weight: 96 kg

DRUGS (3)
  1. HUMIRA [Suspect]
     Active Substance: ADALIMUMAB
     Route: 058
     Dates: start: 2016
  2. HUMIRA [Suspect]
     Active Substance: ADALIMUMAB
     Dosage: LOADING DOSE, WEEK 1
     Route: 058
     Dates: start: 20160308, end: 20160308
  3. HUMIRA [Suspect]
     Active Substance: ADALIMUMAB
     Indication: PSORIASIS
     Dosage: WEEK ZERO, LOADING DOSE
     Route: 058
     Dates: start: 20160301, end: 20160301

REACTIONS (2)
  - Renal cyst [Recovering/Resolving]
  - Renal vascular thrombosis [Recovering/Resolving]

NARRATIVE: CASE EVENT DATE: 201710
